FAERS Safety Report 16597324 (Version 1)
Quarter: 2019Q3

REPORT INFORMATION
  Report Type: Spontaneous
  Country: US (occurrence: US)
  Receive Date: 20190605
  Receipt Date: 20190605
  Transmission Date: 20191004
  Serious: Yes (Death, Hospitalization)
  Sender: FDA-Public Use
  Company Number: None

PATIENT
  Age: 66 Year
  Sex: Male
  Weight: 83.4 kg

DRUGS (1)
  1. DECITABINE (5-AZA-2^-DEOXYCYTIDINE) [Suspect]
     Active Substance: DECITABINE
     Dates: end: 20190414

REACTIONS (8)
  - Hypoxia [None]
  - Disseminated intravascular coagulation [None]
  - Acute respiratory failure [None]
  - Productive cough [None]
  - Pneumonia [None]
  - Hypercapnia [None]
  - Febrile neutropenia [None]
  - Haemoptysis [None]

NARRATIVE: CASE EVENT DATE: 20190503
